FAERS Safety Report 5198915-2 (Version None)
Quarter: 2006Q4

REPORT INFORMATION
  Report Type: 
  Country: None (occurrence: None)
  Receive Date: 20060925
  Receipt Date: 20060530
  Transmission Date: 20070319
  Serious: Yes (Other)
  Sender: FDA-Public Use
  Company Number: US-JNJFOC-20060500740

PATIENT
  Age: 9 Year
  Sex: Male

DRUGS (7)
  1. CONCERTA [Suspect]
     Indication: AUTISM SPECTRUM DISORDER
     Dosage: ORAL
     Route: 048
     Dates: start: 20060329
  2. MEMANTINE HCL [Concomitant]
  3. ADVAIR (SERETIDE MITE) [Concomitant]
  4. SINGULAIR [Concomitant]
  5. DEPAKOTE [Concomitant]
  6. ZONEGRAN [Concomitant]
  7. ABILIFY [Concomitant]

REACTIONS (3)
  - DYSKINESIA [None]
  - HYPERHIDROSIS [None]
  - TACHYCARDIA [None]
